FAERS Safety Report 8836519 (Version 1)
Quarter: 2012Q4

REPORT INFORMATION
  Report Type: Spontaneous
  Country: CA (occurrence: None)
  Receive Date: 20121009
  Receipt Date: 20121009
  Transmission Date: 20130627
  Serious: Yes (Life-Threatening, Hospitalization)
  Sender: FDA-Public Use
  Company Number: 2012P1059980

PATIENT
  Age: 36 Year
  Sex: Female

DRUGS (1)
  1. TWINJECT [Suspect]
     Route: 058
     Dates: start: 20120921, end: 20120921

REACTIONS (1)
  - Medical device complication [None]
